FAERS Safety Report 4483723-8 (Version None)
Quarter: 2004Q4

REPORT INFORMATION
  Report Type: 
  Country: None (occurrence: None)
  Receive Date: 20041021
  Receipt Date: 20041012
  Transmission Date: 20050328
  Serious: Yes (Death)
  Sender: FDA-Public Use
  Company Number: US-JNJFOC-20041003660

PATIENT
  Age: 38 Year
  Sex: 0

DRUGS (1)
  1. ACETAMINOPHEN [Suspect]
     Indication: PAIN
     Dosage: 12 G, 1 IN 1 DAY
     Route: 048

REACTIONS (2)
  - HEPATIC FAILURE [None]
  - OVERDOSE [None]
